FAERS Safety Report 14922434 (Version 3)
Quarter: 2018Q2

REPORT INFORMATION
  Report Type: Spontaneous
  Country: US (occurrence: US)
  Receive Date: 20180522
  Receipt Date: 20180525
  Transmission Date: 20180711
  Serious: No
  Sender: FDA-Public Use
  Company Number: US-PFIZER INC-2018206959

PATIENT
  Age: 71 Year
  Sex: Male
  Weight: 102.6 kg

DRUGS (1)
  1. LYRICA [Suspect]
     Active Substance: PREGABALIN
     Dosage: UNK
     Dates: start: 2006

REACTIONS (3)
  - Pain [Not Recovered/Not Resolved]
  - Wound [Unknown]
  - Insomnia [Unknown]
